FAERS Safety Report 9759889 (Version 2)
Quarter: 2013Q4

REPORT INFORMATION
  Report Type: Report from Study
  Country: DE (occurrence: DE)
  Receive Date: 20131216
  Receipt Date: 20131216
  Transmission Date: 20140711
  Serious: Yes (Other)
  Sender: FDA-Public Use
  Company Number: DE-TEVA-435540GER

PATIENT
  Age: 23 Year
  Sex: Female

DRUGS (5)
  1. COPAXONE [Suspect]
     Indication: MULTIPLE SCLEROSIS
     Dosage: 20 MILLIGRAM DAILY;
     Route: 058
     Dates: start: 20110218
  2. PARACETAMOL [Interacting]
  3. IBUPROFEN [Interacting]
  4. ANY DRUG (FOR EXAMPLE HEADACHE PAIN RELIEVER) [Interacting]
  5. CONTRACEPTIVES NOS [Concomitant]

REACTIONS (2)
  - Angioedema [Recovered/Resolved]
  - Drug interaction [Unknown]
